FAERS Safety Report 6966814-9 (Version None)
Quarter: 2010Q3

REPORT INFORMATION
  Report Type: 
  Country: None (occurrence: None)
  Receive Date: 20100906
  Receipt Date: 20100824
  Transmission Date: 20110219
  Serious: Yes (Hospitalization, Other)
  Sender: FDA-Public Use
  Company Number: PHEH2007US02782

PATIENT
  Sex: Female
  Weight: 53.514 kg

DRUGS (33)
  1. ESTRADERM [Suspect]
     Indication: HORMONE REPLACEMENT THERAPY
     Dosage: 0.1 MG TWICE WEEKLY
     Route: 062
     Dates: start: 19960101, end: 19970101
  2. VIVELLE [Suspect]
     Indication: HORMONE REPLACEMENT THERAPY
     Dosage: 0.05 MG, UNK
     Route: 062
     Dates: start: 19970101
  3. CYCRIN [Suspect]
     Indication: HORMONE REPLACEMENT THERAPY
     Dosage: 2.5 MG, UNK
     Route: 048
     Dates: start: 19960101, end: 19990101
  4. PROVERA [Suspect]
     Indication: HORMONE REPLACEMENT THERAPY
     Dosage: 2.5 MG, UNK
     Dates: start: 19960101, end: 19990101
  5. PREMPRO [Suspect]
     Indication: HORMONE REPLACEMENT THERAPY
     Dosage: 0.625MG/2.5 MG
     Dates: start: 19990101, end: 20010101
  6. ESTRADIOL [Suspect]
     Indication: HORMONE REPLACEMENT THERAPY
     Dates: start: 19980101, end: 19990101
  7. FOSAMAX [Concomitant]
     Dosage: 35 MG, QW
     Dates: start: 20050920
  8. GEMFIBROZIL [Concomitant]
  9. ADVAIR DISKUS 100/50 [Concomitant]
  10. ASPIRIN [Concomitant]
  11. DEMEROL [Concomitant]
  12. MORPHINE SULFATE [Concomitant]
  13. DEXAMETHASONE [Concomitant]
  14. PHENERGAN [Concomitant]
  15. REGLAN [Concomitant]
  16. ANZEMET [Concomitant]
  17. FENTANYL CITRATE [Concomitant]
  18. VERSED [Concomitant]
  19. SUFENTANIL CITRATE [Concomitant]
  20. DIPRIVAN [Concomitant]
  21. XYLOCAINE [Concomitant]
  22. ZEMURON [Concomitant]
  23. NEOSTIGMINE [Concomitant]
  24. ROBINUL [Concomitant]
  25. BENADRYL [Concomitant]
  26. NARCAN [Concomitant]
  27. HYDROXYZINE [Concomitant]
  28. KEFZOL [Concomitant]
  29. LOVENOX [Concomitant]
  30. LORTAB [Concomitant]
  31. MOTRIN [Concomitant]
  32. K-DUR [Concomitant]
  33. COLACE [Concomitant]

REACTIONS (49)
  - AORTIC BRUIT [None]
  - ARTERIOSCLEROSIS [None]
  - BACK PAIN [None]
  - BLOOD TRIGLYCERIDES INCREASED [None]
  - BREAST CALCIFICATIONS [None]
  - BREAST CANCER IN SITU [None]
  - BREAST LUMP REMOVAL [None]
  - BREAST MASS [None]
  - BREAST OPERATION [None]
  - BRONCHITIS [None]
  - BURNING SENSATION [None]
  - CAROTID BRUIT [None]
  - CHEST PAIN [None]
  - CHRONIC OBSTRUCTIVE PULMONARY DISEASE [None]
  - COLONIC POLYP [None]
  - DEEP VEIN THROMBOSIS [None]
  - DIVERTICULUM INTESTINAL [None]
  - DIZZINESS [None]
  - EMPHYSEMA [None]
  - HAEMORRHOID OPERATION [None]
  - HEADACHE [None]
  - HOT FLUSH [None]
  - HYPERCHOLESTEROLAEMIA [None]
  - HYPERGAMMAGLOBULINAEMIA [None]
  - HYPOXIA [None]
  - INFARCTION [None]
  - LOW DENSITY LIPOPROTEIN DECREASED [None]
  - LUNG LOBECTOMY [None]
  - LUNG NEOPLASM [None]
  - MEDIASTINOSCOPY [None]
  - OEDEMA PERIPHERAL [None]
  - OSTEOPENIA [None]
  - OSTEOPOROSIS [None]
  - PAIN IN EXTREMITY [None]
  - PARAESTHESIA [None]
  - PARANEOPLASTIC SYNDROME [None]
  - PERIPHERAL VASCULAR DISORDER [None]
  - PLEURAL EFFUSION [None]
  - PNEUMONIA [None]
  - PNEUMOTHORAX [None]
  - POLYPECTOMY [None]
  - PROTEIN TOTAL INCREASED [None]
  - PULMONARY MASS [None]
  - SPINAL OSTEOARTHRITIS [None]
  - THORACOTOMY [None]
  - UTERINE ATROPHY [None]
  - UTERINE LEIOMYOMA [None]
  - VENOUS INSUFFICIENCY [None]
  - VERTIGO [None]
